FAERS Safety Report 6577161-1 (Version None)
Quarter: 2010Q1

REPORT INFORMATION
  Report Type: 
  Country: None (occurrence: None)
  Receive Date: 20100210
  Receipt Date: 20100129
  Transmission Date: 20100710
  Serious: Yes (Hospitalization)
  Sender: FDA-Public Use
  Company Number: PHHY2010CA05710

PATIENT
  Sex: Female

DRUGS (1)
  1. EXJADE [Suspect]
     Indication: SICKLE CELL ANAEMIA
     Dosage: 1875 MG, QD
     Route: 048
     Dates: start: 20090101, end: 20100108

REACTIONS (4)
  - ABASIA [None]
  - INFLUENZA [None]
  - MOVEMENT DISORDER [None]
  - SWELLING [None]
